FAERS Safety Report 7189404-4 (Version None)
Quarter: 2010Q4

REPORT INFORMATION
  Report Type: 
  Country: None (occurrence: None)
  Receive Date: 20101222
  Receipt Date: 20101210
  Transmission Date: 20110411
  Serious: Yes (Hospitalization)
  Sender: FDA-Public Use
  Company Number: CO-AMGEN-QUU440750

PATIENT

DRUGS (6)
  1. ETANERCEPT [Suspect]
     Indication: SPONDYLOARTHROPATHY
     Dosage: 50 MG, QWK
     Route: 058
     Dates: start: 20080901, end: 20100811
  2. CALCIUM [Concomitant]
     Indication: MINERAL SUPPLEMENTATION
     Dosage: UNK UNK, UNK
  3. URSACOL [Concomitant]
     Indication: BILIARY CIRRHOSIS
     Dosage: 900 MG, QD
  4. URSACOL [Concomitant]
     Indication: AUTOIMMUNE DISORDER
  5. LEVOTHYROXINE SODIUM [Concomitant]
     Indication: HYPERTHYROIDISM
     Dosage: 25 A?G, QD
     Dates: start: 20080101
  6. LOVASTATIN [Concomitant]
     Indication: BLOOD CHOLESTEROL INCREASED
     Dosage: 20 MG, QD
     Dates: start: 20080101

REACTIONS (10)
  - BACK PAIN [None]
  - COUGH [None]
  - FATIGUE [None]
  - FIBROMYALGIA [None]
  - INFLUENZA [None]
  - MALAISE [None]
  - PNEUMONIA [None]
  - PYREXIA [None]
  - RAYNAUD'S PHENOMENON [None]
  - URINARY TRACT INFECTION [None]
